FAERS Safety Report 15704756 (Version 1)
Quarter: 2018Q4

REPORT INFORMATION
  Report Type: Report from Study
  Country: GR (occurrence: GR)
  Receive Date: 20181210
  Receipt Date: 20181210
  Transmission Date: 20190205
  Serious: Yes (Hospitalization)
  Sender: FDA-Public Use
  Company Number: GR-PFIZER INC-2018505072

PATIENT
  Age: 83 Year
  Sex: Male

DRUGS (10)
  1. ANGORON [Suspect]
     Active Substance: AMIODARONE HYDROCHLORIDE
     Indication: CARDIAC DISORDER
     Dosage: UNK
     Route: 048
  2. VIPIDIA [Concomitant]
     Active Substance: ALOGLIPTIN BENZOATE
     Dosage: UNK
  3. LOSEC [OMEPRAZOLE] [Concomitant]
     Dosage: UNK
  4. NUTRISOL [Concomitant]
     Dosage: UNK
  5. HOLISTEN [Concomitant]
     Dosage: UNK
  6. SALOSPIR [Concomitant]
     Active Substance: ASPIRIN
     Dosage: UNK
  7. INSPRA [Concomitant]
     Active Substance: EPLERENONE
     Dosage: UNK
  8. LASIX [Concomitant]
     Active Substance: FUROSEMIDE
     Dosage: UNK
  9. SOLOSA [Suspect]
     Active Substance: GLIMEPIRIDE
     Indication: DIABETES MELLITUS
     Dosage: 1 DF, DAILY
     Route: 048
  10. GLUCOPHAGE [Concomitant]
     Active Substance: METFORMIN HYDROCHLORIDE
     Dosage: UNK

REACTIONS (3)
  - Blood glucose abnormal [Unknown]
  - Lung disorder [Unknown]
  - Dyspnoea [Unknown]
